FAERS Safety Report 6885136-8 (Version None)
Quarter: 2010Q3

REPORT INFORMATION
  Report Type: 
  Country: None (occurrence: None)
  Receive Date: 20100729
  Receipt Date: 20071218
  Transmission Date: 20110219
  Serious: Yes (Other)
  Sender: FDA-Public Use
  Company Number: US-PFIZER INC-2007094482

PATIENT
  Sex: Female
  Weight: 47.6 kg

DRUGS (5)
  1. CELEBREX [Suspect]
     Indication: FIBROMYALGIA
     Dates: start: 20030101, end: 20040101
  2. VICOPROFEN [Suspect]
     Indication: PAIN
  3. OXYCONTIN [Concomitant]
  4. VICODIN [Concomitant]
  5. KLONOPIN [Concomitant]

REACTIONS (1)
  - PEPTIC ULCER PERFORATION [None]
